FAERS Safety Report 10774209 (Version 1)
Quarter: 2015Q1

REPORT INFORMATION
  Report Type: Report from Study
  Country: US (occurrence: US)
  Receive Date: 20150208
  Receipt Date: 20150208
  Transmission Date: 20150721
  Serious: Yes (Hospitalization)
  Sender: FDA-Public Use
  Company Number: PHEH2015US002336

PATIENT
  Sex: Female

DRUGS (1)
  1. GILENYA [Suspect]
     Active Substance: FINGOLIMOD HYDROCHLORIDE
     Indication: PRODUCT USED FOR UNKNOWN INDICATION
     Dosage: UNK, QD
     Route: 048
     Dates: start: 20150127

REACTIONS (6)
  - Chest discomfort [Unknown]
  - Blood glucose increased [Unknown]
  - Back pain [Unknown]
  - Lhermitte^s sign [Unknown]
  - Blood pressure increased [Unknown]
  - Band sensation [Unknown]
